FAERS Safety Report 23019814 (Version 1)
Quarter: 2023Q4

REPORT INFORMATION
  Report Type: Spontaneous
  Country: US (occurrence: None)
  Receive Date: 20231002
  Receipt Date: 20231002
  Transmission Date: 20240109
  Serious: Yes (Hospitalization, Disabling)
  Sender: FDA-Public Use
  Company Number: None

PATIENT
  Age: 50 Year
  Sex: Female
  Weight: 63 kg

DRUGS (5)
  1. CLINDAMYCIN [Suspect]
     Active Substance: CLINDAMYCIN
     Indication: Hypersensitivity
     Dates: start: 20230405, end: 20230414
  2. DILTIAZEM [Concomitant]
     Active Substance: DILTIAZEM
  3. CALCIUM CITRATE [Concomitant]
     Active Substance: CALCIUM CITRATE
  4. MELATONIN [Concomitant]
     Active Substance: MELATONIN
  5. ZYRTEC [Concomitant]
     Active Substance: CETIRIZINE HYDROCHLORIDE

REACTIONS (5)
  - Clostridium difficile infection [None]
  - Product prescribing issue [None]
  - Incorrect dose administered [None]
  - Inappropriate schedule of product administration [None]
  - Treatment failure [None]

NARRATIVE: CASE EVENT DATE: 20230405
